FAERS Safety Report 9955552 (Version 1)
Quarter: 2014Q1

REPORT INFORMATION
  Report Type: Report from Study
  Country: US (occurrence: US)
  Receive Date: 20140304
  Receipt Date: 20140304
  Transmission Date: 20141002
  Serious: Yes (Hospitalization)
  Sender: FDA-Public Use
  Company Number: US-ABBVIE-13P-163-1077294-00

PATIENT
  Age: 11 Year
  Sex: Female
  Weight: 42.04 kg

DRUGS (11)
  1. HUMIRA [Suspect]
     Indication: CROHN^S DISEASE
     Dates: start: 201301, end: 201301
  2. HUMIRA [Suspect]
     Dates: start: 201301, end: 201301
  3. HUMIRA [Suspect]
     Dates: start: 201302
  4. METHOTREXATE [Concomitant]
     Indication: CROHN^S DISEASE
  5. COLCRYS [Concomitant]
     Indication: CROHN^S DISEASE
  6. PREDNISONE [Concomitant]
     Indication: CROHN^S DISEASE
  7. PREVACID [Concomitant]
     Indication: CROHN^S DISEASE
  8. HYDROCHLOROTHIAZIDE [Concomitant]
     Indication: BLOOD SODIUM INCREASED
  9. HYDROCHLOROTHIAZIDE [Concomitant]
     Indication: SODIUM RETENTION
  10. FOLIC ACID [Concomitant]
     Indication: PRODUCT USED FOR UNKNOWN INDICATION
  11. SINGULAIR [Concomitant]
     Indication: ASTHMA

REACTIONS (9)
  - Pneumonia [Recovered/Resolved]
  - Chest pain [Recovered/Resolved]
  - Musculoskeletal chest pain [Recovered/Resolved]
  - Back pain [Recovered/Resolved]
  - Infectious pleural effusion [Unknown]
  - Off label use [Not Recovered/Not Resolved]
  - Drug dose omission [Unknown]
  - Injection site extravasation [Unknown]
  - Injection site haemorrhage [Unknown]
